FAERS Safety Report 5450278-0 (Version None)
Quarter: 2007Q3

REPORT INFORMATION
  Report Type: 
  Country: None (occurrence: None)
  Receive Date: 20070912
  Receipt Date: 20070905
  Transmission Date: 20080115
  Serious: Yes (Disabling, Congenital Anomaly)
  Sender: FDA-Public Use
  Company Number: GBWYE374905APR07

PATIENT

DRUGS (1)
  1. EFFEXOR XR [Suspect]
     Dosage: 225MG, FREQUENCY UNKNOWN

REACTIONS (5)
  - CONGENITAL ANOMALY [None]
  - DRUG EXPOSURE DURING PREGNANCY [None]
  - DYSMORPHISM [None]
  - FEEDING DISORDER [None]
  - MOTOR DYSFUNCTION [None]
